FAERS Safety Report 4735177-1 (Version None)
Quarter: 2005Q3

REPORT INFORMATION
  Report Type: 
  Country: None (occurrence: None)
  Receive Date: 20050804
  Receipt Date: 20050721
  Transmission Date: 20060218
  Serious: Yes (Other)
  Sender: FDA-Public Use
  Company Number: 2005106042

PATIENT
  Age: 67 Year
  Sex: Male
  Weight: 79.8331 kg

DRUGS (8)
  1. NORVASC [Suspect]
     Indication: CARDIAC DISORDER
     Dosage: 2.5 MG (2.5 MG, 1 IN 1 D), ORAL
     Route: 048
     Dates: start: 20050101
  2. NORVASC [Suspect]
     Indication: HYPERTENSION
     Dosage: 2.5 MG (2.5 MG, 1 IN 1 D), ORAL
     Route: 048
     Dates: start: 20050101
  3. LIPITOR [Suspect]
     Indication: BLOOD CHOLESTEROL INCREASED
     Dosage: 20 MG (20 MG, 1 IN 1 D), ORAL
     Route: 048
     Dates: start: 20040101, end: 20050101
  4. COREG [Suspect]
     Indication: HYPERTENSION
     Dosage: ORAL
     Route: 048
     Dates: start: 20050101
  5. VYTORIN [Suspect]
     Indication: ILL-DEFINED DISORDER
     Dates: start: 20050101, end: 20050601
  6. ALTACE [Concomitant]
  7. PLAVIX [Concomitant]
  8. TOPROL-XL [Concomitant]

REACTIONS (7)
  - EYE PAIN [None]
  - INSOMNIA [None]
  - MACULAR OEDEMA [None]
  - MUSCULAR WEAKNESS [None]
  - RETINAL HAEMORRHAGE [None]
  - SWELLING [None]
  - VISION BLURRED [None]
